FAERS Safety Report 25132753 (Version 2)
Quarter: 2025Q4

REPORT INFORMATION
  Report Type: Spontaneous
  Country: CA (occurrence: CA)
  Receive Date: 20250328
  Receipt Date: 20251030
  Transmission Date: 20260118
  Serious: Yes (Other)
  Sender: AUROBINDO
  Company Number: CA-MLMSERVICE-20250307-PI439978-00295-1

PATIENT
  Age: 26 Year
  Sex: Female

DRUGS (9)
  1. SERTRALINE [Suspect]
     Active Substance: SERTRALINE HYDROCHLORIDE
     Indication: Perinatal depression
     Dosage: 75 MILLIGRAM, DAILY
     Route: 065
  2. SERTRALINE [Suspect]
     Active Substance: SERTRALINE HYDROCHLORIDE
     Indication: Obsessive-compulsive disorder
  3. SERTRALINE [Suspect]
     Active Substance: SERTRALINE HYDROCHLORIDE
     Indication: Depression
  4. SERTRALINE [Suspect]
     Active Substance: SERTRALINE HYDROCHLORIDE
     Indication: Bipolar II disorder
  5. SERTRALINE [Suspect]
     Active Substance: SERTRALINE HYDROCHLORIDE
     Indication: Anxiety
  6. QUETIAPINE [Concomitant]
     Active Substance: QUETIAPINE
     Indication: Perinatal depression
     Dosage: 25 MILLIGRAM, ONCE A DAY
     Route: 065
  7. QUETIAPINE [Concomitant]
     Active Substance: QUETIAPINE
     Indication: Obsessive-compulsive disorder
     Dosage: 125 MILLIGRAM, ONCE A DAY
     Route: 065
  8. QUETIAPINE [Concomitant]
     Active Substance: QUETIAPINE
     Indication: Bipolar II disorder
  9. LORAZEPAM [Concomitant]
     Active Substance: LORAZEPAM
     Indication: Perinatal depression
     Dosage: 0.5 MILLIGRAM, ONCE A DAY (AS NEEDED)
     Route: 065

REACTIONS (5)
  - Bipolar II disorder [Recovering/Resolving]
  - Anger [Recovered/Resolved]
  - Mania [Recovered/Resolved]
  - Condition aggravated [Recovered/Resolved]
  - Drug ineffective [Recovered/Resolved]
